FAERS Safety Report 8622344-X (Version None)
Quarter: 2012Q3

REPORT INFORMATION
  Report Type: 
  Country: None (occurrence: None)
  Receive Date: 20120827
  Receipt Date: 20120820
  Transmission Date: 20120928
  Serious: No
  Sender: FDA-Public Use
  Company Number: US-BIOGENIDEC-2011BI033326

PATIENT
  Sex: Female

DRUGS (1)
  1. TYSABRI [Suspect]
     Indication: MULTIPLE SCLEROSIS
     Route: 042
     Dates: start: 20100113

REACTIONS (6)
  - NASOPHARYNGITIS [None]
  - GASTROINTESTINAL TUBE INSERTION [None]
  - FATIGUE [None]
  - TRACHEOSTOMY [None]
  - DIZZINESS [None]
  - INCONTINENCE [None]
